FAERS Safety Report 20014127 (Version 7)
Quarter: 2022Q1

REPORT INFORMATION
  Report Type: Spontaneous
  Country: JP (occurrence: JP)
  Receive Date: 20211029
  Receipt Date: 20220218
  Transmission Date: 20220424
  Serious: Yes (Death, Hospitalization)
  Sender: FDA-Public Use
  Company Number: JP-CELGENE-JPN-20211006956

PATIENT
  Age: 79 Year
  Sex: Male
  Weight: 81.5 kg

DRUGS (33)
  1. AZACITIDINE [Suspect]
     Active Substance: AZACITIDINE
     Indication: Myelodysplastic syndrome
     Dosage: 75 MILLIGRAM/SQ. METER
     Route: 058
     Dates: start: 20210803, end: 20211108
  2. AZACITIDINE [Suspect]
     Active Substance: AZACITIDINE
     Dosage: 75 MILLIGRAM/SQ. METER
     Route: 058
     Dates: start: 20211109, end: 20211115
  3. VENETOCLAX [Suspect]
     Active Substance: VENETOCLAX
     Indication: Myelodysplastic syndrome
     Route: 048
  4. AZOSEMIDE [Concomitant]
     Active Substance: AZOSEMIDE
     Indication: Oedema peripheral
     Dosage: 60 MILLIGRAM
     Route: 048
     Dates: start: 202104
  5. AZOSEMIDE [Concomitant]
     Active Substance: AZOSEMIDE
     Indication: Pleural effusion
     Dosage: 60 MILLIGRAM
     Route: 048
     Dates: start: 20210914, end: 20210927
  6. AZOSEMIDE [Concomitant]
     Active Substance: AZOSEMIDE
     Dosage: 60 MILLIGRAM
     Route: 048
     Dates: start: 20210914, end: 20210927
  7. AZOSEMIDE [Concomitant]
     Active Substance: AZOSEMIDE
     Dosage: 60 MILLIGRAM
     Route: 048
     Dates: start: 20210928
  8. MAGNESIUM OXIDE [Concomitant]
     Active Substance: MAGNESIUM OXIDE
     Indication: Constipation
     Dosage: 330 MILLIGRAM
     Route: 048
     Dates: start: 202104
  9. MAGNESIUM OXIDE [Concomitant]
     Active Substance: MAGNESIUM OXIDE
     Dosage: 220 MILLIGRAM
     Route: 048
     Dates: start: 20210430, end: 20211015
  10. BETAMETHASONE BUTYRATE PROPIONATE [Concomitant]
     Active Substance: BETAMETHASONE BUTYRATE PROPIONATE
     Indication: Eczema
     Route: 061
     Dates: start: 20210524
  11. BETAMETHASONE BUTYRATE PROPIONATE [Concomitant]
     Active Substance: BETAMETHASONE BUTYRATE PROPIONATE
     Indication: Injection site reaction
     Route: 061
     Dates: start: 20210831
  12. HEPARINOID [Concomitant]
     Indication: Eczema
     Route: 061
     Dates: start: 20210524
  13. SODIUM PICOSULFATE [Concomitant]
     Active Substance: SODIUM PICOSULFATE
     Indication: Constipation
     Route: 048
     Dates: start: 20210804
  14. AZULEN G [Concomitant]
     Indication: Infection prophylaxis
     Route: 049
     Dates: start: 20210802
  15. LEVOFLOXACIN [Concomitant]
     Active Substance: LEVOFLOXACIN
     Indication: Infection prophylaxis
     Dosage: 500 MILLIGRAM
     Route: 048
     Dates: start: 20210803
  16. BELSOMRA [Concomitant]
     Active Substance: SUVOREXANT
     Indication: Insomnia
     Dosage: 15 MILLIGRAM
     Route: 048
     Dates: start: 20210807
  17. FEBUXOSTAT [Concomitant]
     Active Substance: FEBUXOSTAT
     Indication: Hyperuricaemia
     Dosage: 20 MILLIGRAM
     Route: 048
     Dates: start: 20210813
  18. OLOPATADINE HYDROCHLORIDE [Concomitant]
     Active Substance: OLOPATADINE HYDROCHLORIDE
     Indication: Eczema
     Dosage: 10 MILLIGRAM
     Route: 048
     Dates: start: 20210831
  19. OLOPATADINE HYDROCHLORIDE [Concomitant]
     Active Substance: OLOPATADINE HYDROCHLORIDE
     Indication: Injection site reaction
  20. SPIRONOLACTONE [Concomitant]
     Active Substance: SPIRONOLACTONE
     Indication: Pleural effusion
     Dosage: 25 MILLIGRAM
     Route: 048
     Dates: start: 20210901, end: 20210902
  21. SPIRONOLACTONE [Concomitant]
     Active Substance: SPIRONOLACTONE
     Indication: Oedema peripheral
     Dosage: 50 MILLIGRAM
     Route: 048
     Dates: start: 20210903, end: 20210905
  22. SPIRONOLACTONE [Concomitant]
     Active Substance: SPIRONOLACTONE
     Dosage: 25 MILLIGRAM
     Route: 048
     Dates: start: 20210906
  23. SPIRONOLACTONE [Concomitant]
     Active Substance: SPIRONOLACTONE
     Dosage: 25 MILLIGRAM
     Route: 048
     Dates: start: 20211014, end: 20211107
  24. SAMSCA [Concomitant]
     Active Substance: TOLVAPTAN
     Indication: Oedema peripheral
     Dosage: 3.75 MILLIGRAM
     Route: 048
     Dates: start: 20210903, end: 20210927
  25. SAMSCA [Concomitant]
     Active Substance: TOLVAPTAN
     Indication: Pleural effusion
     Dosage: 7.5 MILLIGRAM
     Route: 048
     Dates: start: 20210928
  26. SENOSIDE [Concomitant]
     Indication: Constipation
     Dosage: 12 MILLIGRAM
     Route: 048
     Dates: start: 20211004
  27. SENOSIDE [Concomitant]
     Indication: Constipation
     Dosage: 24 MILLIGRAM
     Route: 048
     Dates: start: 20211004
  28. SENOSIDE [Concomitant]
     Dosage: 24 MILLIGRAM
     Route: 048
     Dates: start: 20211011
  29. FUROSEMIDE [Concomitant]
     Active Substance: FUROSEMIDE
     Indication: Oedema peripheral
     Dosage: 20 MILLIGRAM
     Route: 048
     Dates: start: 20211004
  30. FUROSEMIDE [Concomitant]
     Active Substance: FUROSEMIDE
     Indication: Pleural effusion
  31. KYTRIL [Concomitant]
     Active Substance: GRANISETRON HYDROCHLORIDE
     Indication: Premedication
     Dosage: 2 MILLIGRAM
     Route: 048
     Dates: start: 20211012, end: 20211018
  32. KYTRIL [Concomitant]
     Active Substance: GRANISETRON HYDROCHLORIDE
     Dosage: 2 MILLIGRAM
     Route: 048
     Dates: start: 20211012
  33. Coix seed [Concomitant]
     Indication: Eczema
     Dosage: .99 GRAM
     Route: 048
     Dates: start: 20180515, end: 20211018

REACTIONS (2)
  - Chylothorax [Fatal]
  - Myelodysplastic syndrome [Fatal]

NARRATIVE: CASE EVENT DATE: 20211015
